FAERS Safety Report 23441883 (Version 3)
Quarter: 2024Q2

REPORT INFORMATION
  Report Type: Spontaneous
  Country: US (occurrence: US)
  Receive Date: 20240125
  Receipt Date: 20240509
  Transmission Date: 20240716
  Serious: No
  Sender: FDA-Public Use
  Company Number: US-BRISTOL-MYERS SQUIBB COMPANY-2024-013095

PATIENT
  Age: 74 Year
  Sex: Female
  Weight: 81.19 kg

DRUGS (2)
  1. REVLIMID [Suspect]
     Active Substance: LENALIDOMIDE
     Indication: Plasma cell myeloma
     Dosage: DAILY -28 DAYS
     Route: 048
     Dates: start: 2019
  2. REVLIMID [Suspect]
     Active Substance: LENALIDOMIDE
     Dosage: FREQ- DAILY ON DAYS 1-28 OF 28 DAY CYCLE
     Route: 048
     Dates: start: 2019

REACTIONS (3)
  - Diarrhoea [Unknown]
  - Influenza [Recovered/Resolved]
  - Flatulence [Recovering/Resolving]
